FAERS Safety Report 10176553 (Version 1)
Quarter: 2014Q2

REPORT INFORMATION
  Report Type: Spontaneous
  Country: CH (occurrence: CH)
  Receive Date: 20140516
  Receipt Date: 20140516
  Transmission Date: 20141212
  Serious: Yes (Hospitalization)
  Sender: FDA-Public Use
  Company Number: CH-TEVA-427762ISR

PATIENT
  Age: 59 Year
  Sex: Female

DRUGS (7)
  1. COMILORID-MEPHA [Suspect]
     Indication: PRODUCT USED FOR UNKNOWN INDICATION
     Dosage: .5 DOSAGE FORMS DAILY; LONG TERM, STRENGTH NOT PROVIDED, EVERY 2 TO 3 DAYS
     Route: 048
     Dates: end: 20130715
  2. LISINOPRIL [Suspect]
     Indication: HYPERTENSIVE HEART DISEASE
     Dosage: 20 MILLIGRAM DAILY; LONG TERM, AT LEAST SINCE 2004
     Route: 048
     Dates: start: 2004, end: 20130715
  3. PONSTAN [Suspect]
     Indication: BACK PAIN
     Route: 048
     Dates: end: 201306
  4. ZOCOR [Suspect]
     Indication: PROPHYLAXIS
     Dosage: 40 MILLIGRAM DAILY; LONG TERM, AT LEAST SINCE 2001
     Route: 048
     Dates: start: 2001, end: 20130715
  5. PANTOZOL [Concomitant]
     Indication: PRODUCT USED FOR UNKNOWN INDICATION
     Route: 065
  6. IMOVANE [Concomitant]
     Indication: PRODUCT USED FOR UNKNOWN INDICATION
     Route: 065
  7. ASPIRIN [Concomitant]
     Indication: PRODUCT USED FOR UNKNOWN INDICATION
     Dosage: AT LEAST SINCE 2001
     Route: 065

REACTIONS (6)
  - Renal failure acute [Recovered/Resolved]
  - Diarrhoea [Recovered/Resolved]
  - Vomiting [Recovered/Resolved]
  - Metabolic acidosis [Recovered/Resolved]
  - Eosinophilia [Recovering/Resolving]
  - Colitis [Recovered/Resolved]
